FAERS Safety Report 6810612-3 (Version None)
Quarter: 2010Q2

REPORT INFORMATION
  Report Type: 
  Country: None (occurrence: None)
  Receive Date: 20100630
  Receipt Date: 20100618
  Transmission Date: 20101027
  Serious: Yes (Other)
  Sender: FDA-Public Use
  Company Number: TT-GENENTECH-303354

PATIENT
  Age: 19 Year
  Sex: Female

DRUGS (2)
  1. MABTHERA [Suspect]
     Indication: DRUG USE FOR UNKNOWN INDICATION
     Dosage: 900 MG, UNK
     Route: 042
     Dates: start: 20100611
  2. MABTHERA [Suspect]
     Dosage: 900 MG, UNK
     Route: 042

REACTIONS (5)
  - CHEST PAIN [None]
  - DIZZINESS [None]
  - GAIT DISTURBANCE [None]
  - HYPOAESTHESIA [None]
  - HYPOTENSION [None]
